FAERS Safety Report 8585719-3 (Version None)
Quarter: 2012Q3

REPORT INFORMATION
  Report Type: 
  Country: None (occurrence: None)
  Receive Date: 20120810
  Receipt Date: 20120807
  Transmission Date: 20120928
  Serious: Yes (Hospitalization, Other)
  Sender: FDA-Public Use
  Company Number: JP-PFIZER INC-2012184485

PATIENT
  Age: 62 Year
  Sex: Male

DRUGS (3)
  1. DOXAZOSIN MESYLATE [Suspect]
     Dosage: UNK
     Route: 048
  2. MUCOSTA [Concomitant]
     Dosage: 200 MG, DAILY
     Route: 048
  3. LANSOPRAZOLE [Concomitant]
     Dosage: 15 MG, DAILY
     Route: 048

REACTIONS (1)
  - PULMONARY EMBOLISM [None]
